FAERS Safety Report 7919373-8 (Version None)
Quarter: 2011Q4

REPORT INFORMATION
  Report Type: 
  Country: None (occurrence: None)
  Receive Date: 20111117
  Receipt Date: 20111108
  Transmission Date: 20120403
  Serious: Yes (Other)
  Sender: FDA-Public Use
  Company Number: IE-JNJFOC-20111105288

PATIENT

DRUGS (6)
  1. OLANZAPINE [Suspect]
     Indication: PRODUCT USED FOR UNKNOWN INDICATION
     Route: 065
  2. OLANZAPINE [Suspect]
     Route: 065
  3. OLANZAPINE [Suspect]
     Route: 065
  4. PALIPERIDONE [Suspect]
     Dosage: (8 DAYS LATER)
     Route: 030
  5. PALIPERIDONE [Suspect]
     Dosage: DAY 36 DOSE
     Route: 030
  6. PALIPERIDONE [Suspect]
     Indication: PRODUCT USED FOR UNKNOWN INDICATION
     Dosage: FIRST DOSE
     Route: 030

REACTIONS (1)
  - PSYCHOTIC DISORDER [None]
